FAERS Safety Report 24652672 (Version 1)
Quarter: 2024Q4

REPORT INFORMATION
  Report Type: Spontaneous
  Country: GB (occurrence: GB)
  Receive Date: 20241122
  Receipt Date: 20241122
  Transmission Date: 20250115
  Serious: Yes (Other)
  Sender: RANBAXY
  Company Number: GB-MHRA-MED-202411071449039220-CTNGK

PATIENT
  Age: 22 Year
  Sex: Female
  Weight: 70 kg

DRUGS (1)
  1. ISOTRETINOIN [Suspect]
     Active Substance: ISOTRETINOIN
     Indication: Acne
     Dosage: 40MG
     Route: 065
     Dates: start: 20240925, end: 20241107

REACTIONS (1)
  - Palpitations [Recovering/Resolving]
